FAERS Safety Report 6380813-X (Version None)
Quarter: 2009Q3

REPORT INFORMATION
  Report Type: 
  Country: None (occurrence: None)
  Receive Date: 20090924
  Receipt Date: 20090914
  Transmission Date: 20100115
  Serious: Yes (Other)
  Sender: FDA-Public Use
  Company Number: CAP09000239

PATIENT
  Sex: Female

DRUGS (3)
  1. ACTONEL [Suspect]
     Indication: OSTEOPOROSIS
     Dosage: 35 MG ONCE WEEKLY, ORAL; 35 MG ONCE EVERY OTHER WEEK, ORAL
     Route: 048
     Dates: start: 20010101, end: 20080801
  2. GLUCOCORTICOIDS [Concomitant]
  3. IMURAN [Concomitant]

REACTIONS (3)
  - FALL [None]
  - FEMUR FRACTURE [None]
  - LIMB CRUSHING INJURY [None]
